FAERS Safety Report 7020279-X (Version None)
Quarter: 2010Q3

REPORT INFORMATION
  Report Type: 
  Country: None (occurrence: None)
  Receive Date: 20100929
  Receipt Date: 20100927
  Transmission Date: 20110219
  Serious: Yes (Death)
  Sender: FDA-Public Use
  Company Number: JP-B.I. PHARMACEUTICALS,INC./RIDGEFIELD-2010-BP-10816NB

PATIENT
  Sex: Male
  Weight: 59 kg

DRUGS (7)
  1. MICOMBI COMBINATION [Suspect]
     Indication: HYPERTENSION
     Dosage: 1DF  80MG/12.5MG
     Route: 048
     Dates: start: 20100521, end: 20100609
  2. ZETIA [Suspect]
     Indication: HYPERCHOLESTEROLAEMIA
     Dosage: 10 MG
     Route: 048
  3. LIVALO [Suspect]
     Indication: HYPERCHOLESTEROLAEMIA
     Dosage: 1 MG
     Route: 048
  4. EPADEL S [Suspect]
     Indication: HYPERLIPIDAEMIA
     Dosage: 900 MG
     Route: 048
  5. ZYLORIC [Suspect]
     Indication: HYPERURICAEMIA
     Dosage: 200 MG
     Route: 048
  6. TENORMIN [Suspect]
     Indication: HYPERTENSION
     Dosage: 25 MG
     Route: 048
     Dates: start: 20100609, end: 20100609
  7. MICARDIS [Concomitant]
     Indication: HYPERTENSION
     Dosage: 40 MG
     Route: 048

REACTIONS (2)
  - DEATH [None]
  - DRUG INEFFECTIVE [None]
